FAERS Safety Report 25802389 (Version 1)
Quarter: 2025Q3

REPORT INFORMATION
  Report Type: Spontaneous
  Country: US (occurrence: None)
  Receive Date: 20250912
  Receipt Date: 20250912
  Transmission Date: 20251020
  Serious: Yes (Death)
  Sender: FDA-CTU
  Company Number: None

PATIENT
  Age: 76 Year
  Sex: Male

DRUGS (31)
  1. PIRFENIDONE [Suspect]
     Active Substance: PIRFENIDONE
     Indication: Interstitial lung disease
     Dosage: 801MG TID ORAL ?
     Route: 048
     Dates: start: 20211111, end: 20250415
  2. lorazeparn [Concomitant]
  3. prednisone, [Concomitant]
  4. atovaguone [Concomitant]
  5. SENNA [Concomitant]
     Active Substance: SENNOSIDES
  6. CETYLPYRIDINIUM CHLORIDE [Concomitant]
     Active Substance: CETYLPYRIDINIUM CHLORIDE
  7. saline mist nasal spray [Concomitant]
  8. CLEARLAX [Concomitant]
     Active Substance: POLYETHYLENE GLYCOL 3350
  9. MELATONIN [Concomitant]
     Active Substance: MELATONIN
  10. GUAIFENESIN AC [Concomitant]
     Active Substance: CODEINE PHOSPHATE\GUAIFENESIN
  11. lsivothyroxine [Concomitant]
  12. ALBUTEROL [Concomitant]
     Active Substance: ALBUTEROL
  13. FLONASE [Concomitant]
     Active Substance: FLUTICASONE PROPIONATE
  14. clotrimazole top cream [Concomitant]
  15. bisacodyl supp [Concomitant]
  16. TYLENOL [Concomitant]
     Active Substance: ACETAMINOPHEN
  17. DIETARY SUPPLEMENT [Concomitant]
     Active Substance: DIETARY SUPPLEMENT
  18. PHENOBARBITAL [Concomitant]
     Active Substance: PHENOBARBITAL
  19. surgilube [Concomitant]
  20. atropine opht drop [Concomitant]
  21. morphine concentrate [Concomitant]
  22. HALDOL [Concomitant]
     Active Substance: HALOPERIDOL
  23. OMEPRAZOLE [Concomitant]
     Active Substance: OMEPRAZOLE
  24. latanoprost opht drop [Concomitant]
  25. ZYRTEC [Concomitant]
     Active Substance: CETIRIZINE HYDROCHLORIDE
  26. FEXOFENADINE [Concomitant]
     Active Substance: FEXOFENADINE HYDROCHLORIDE
  27. VITAMIN D3 [Concomitant]
     Active Substance: CHOLECALCIFEROL
  28. VITAMIN B12 [Concomitant]
     Active Substance: CYANOCOBALAMIN
  29. FISH OIL [Concomitant]
     Active Substance: FISH OIL
  30. ALPHAGAN P [Concomitant]
     Active Substance: BRIMONIDINE TARTRATE
  31. cosopt opht drop [Concomitant]

REACTIONS (4)
  - Pulmonary fibrosis [None]
  - Condition aggravated [None]
  - Pneumonitis [None]
  - Lung consolidation [None]

NARRATIVE: CASE EVENT DATE: 20250716
